FAERS Safety Report 8543474-7 (Version None)
Quarter: 2012Q3

REPORT INFORMATION
  Report Type: 
  Country: None (occurrence: None)
  Receive Date: 20120727
  Receipt Date: 20120724
  Transmission Date: 20120928
  Serious: Yes (Other)
  Sender: FDA-Public Use
  Company Number: PHEH2012US014551

PATIENT
  Sex: Male

DRUGS (2)
  1. TRILEPTAL [Suspect]
     Indication: CONVULSION
     Dosage: 200 MG, QID
     Route: 048
  2. PERCOCET [Concomitant]
     Indication: PAIN
     Dosage: 5 MG, PRN
     Route: 048

REACTIONS (2)
  - STRESS [None]
  - FEELING ABNORMAL [None]
